FAERS Safety Report 4651854-5 (Version None)
Quarter: 2005Q2

REPORT INFORMATION
  Report Type: 
  Country: None (occurrence: None)
  Receive Date: 20050504
  Receipt Date: 20050423
  Transmission Date: 20051028
  Serious: Yes (Other)
  Sender: FDA-Public Use
  Company Number: AP0516

PATIENT
  Sex: Female

DRUGS (1)
  1. LOTRONEX [Suspect]
     Indication: DRUG USE FOR UNKNOWN INDICATION
     Dosage: 1MG TWICE PER DAY
     Dates: start: 20050101, end: 20050324

REACTIONS (2)
  - ABORTION SPONTANEOUS [None]
  - RECTAL HAEMORRHAGE [None]
